FAERS Safety Report 20926857 (Version 1)
Quarter: 2022Q2

REPORT INFORMATION
  Report Type: Spontaneous
  Country: IT (occurrence: IT)
  Receive Date: 20220607
  Receipt Date: 20220607
  Transmission Date: 20220721
  Serious: Yes (Hospitalization, Other)
  Sender: FDA-Public Use
  Company Number: IT-ELI_LILLY_AND_COMPANY-IT202206001172

PATIENT
  Age: 79 Year
  Sex: Female

DRUGS (5)
  1. ETESEVIMAB [Suspect]
     Active Substance: ETESEVIMAB
     Indication: COVID-19
     Dosage: 1400 MG, SINGLE
     Route: 065
  2. BAMLANIVIMAB [Suspect]
     Active Substance: BAMLANIVIMAB
     Indication: COVID-19
     Dosage: 700 MG, SINGLE
     Route: 065
  3. RITUXIMAB [Concomitant]
     Active Substance: RITUXIMAB
  4. ZOFENOPRIL [Concomitant]
     Active Substance: ZOFENOPRIL
     Dosage: UNK, UNKNOWN
     Route: 065
  5. NEBIVOLOL [Concomitant]
     Active Substance: NEBIVOLOL
     Dosage: UNK, UNKNOWN
     Route: 065

REACTIONS (1)
  - Atrial fibrillation [Recovered/Resolved]
